FAERS Safety Report 6085456-3 (Version None)
Quarter: 2009Q1

REPORT INFORMATION
  Report Type: 
  Country: None (occurrence: None)
  Receive Date: 20090220
  Receipt Date: 20090218
  Transmission Date: 20090719
  Serious: Yes (Congenital Anomaly, Other)
  Sender: FDA-Public Use
  Company Number: CZ-AVENTIS-200816748EU

PATIENT
  Age: 22 Year
  Sex: Female

DRUGS (3)
  1. CLEXANE [Suspect]
     Route: 058
     Dates: start: 20050101, end: 20050101
  2. CLEXANE [Suspect]
     Dates: start: 20070101, end: 20070101
  3. FRAXIPARINE [Concomitant]
     Dates: start: 20050101, end: 20050101

REACTIONS (4)
  - ABORTION INDUCED [None]
  - ABORTION SPONTANEOUS [None]
  - DRUG EXPOSURE DURING PREGNANCY [None]
  - GASTROSCHISIS [None]
